FAERS Safety Report 12664387 (Version 1)
Quarter: 2016Q3

REPORT INFORMATION
  Report Type: Report from Study
  Country: US (occurrence: US)
  Receive Date: 20160818
  Receipt Date: 20160818
  Transmission Date: 20161109
  Serious: Yes (Other)
  Sender: FDA-Public Use
  Company Number: US-SA-2016SA147981

PATIENT
  Age: 32 Year
  Sex: Male

DRUGS (3)
  1. XANAX [Concomitant]
     Active Substance: ALPRAZOLAM
  2. LEMTRADA [Suspect]
     Active Substance: ALEMTUZUMAB
     Indication: MULTIPLE SCLEROSIS
     Route: 041
     Dates: start: 20150914, end: 20150918
  3. NUVIGIL [Concomitant]
     Active Substance: ARMODAFINIL
     Dosage: TAKING REGULARLY

REACTIONS (4)
  - Liver function test abnormal [Unknown]
  - Haematochezia [Unknown]
  - Thyroid function test abnormal [Unknown]
  - Solar lentigo [Not Recovered/Not Resolved]

NARRATIVE: CASE EVENT DATE: 201605
